FAERS Safety Report 5405381-8 (Version None)
Quarter: 2007Q3

REPORT INFORMATION
  Report Type: 
  Country: None (occurrence: None)
  Receive Date: 20070803
  Receipt Date: 20070726
  Transmission Date: 20080115
  Serious: Yes (Disabling)
  Sender: FDA-Public Use
  Company Number: PT-ABBOTT-07P-130-0375965-00

PATIENT
  Sex: Male

DRUGS (1)
  1. KLACID [Suspect]
     Indication: INFECTION
     Route: 048
     Dates: start: 20060101, end: 20070501

REACTIONS (1)
  - ARTHRALGIA [None]
